FAERS Safety Report 21513453 (Version 1)
Quarter: 2022Q4

REPORT INFORMATION
  Report Type: Report from Study
  Country: GB (occurrence: GB)
  Receive Date: 20221027
  Receipt Date: 20221027
  Transmission Date: 20230113
  Serious: Yes (Death, Other)
  Sender: FDA-Public Use
  Company Number: GB-PFIZER INC-PV202200081724

PATIENT

DRUGS (1)
  1. PACLITAXEL [Suspect]
     Active Substance: PACLITAXEL
     Indication: HER2 negative breast cancer
     Dosage: 1 H INFUSION OF 80 MG/M2 ON A WEEKLY BASIS (D1, 8, 15 ON EACH 21 DAY CYCLE)
     Route: 042

REACTIONS (1)
  - Sepsis [Fatal]
